FAERS Safety Report 4820594-1 (Version None)
Quarter: 2005Q4

REPORT INFORMATION
  Report Type: 
  Country: None (occurrence: None)
  Receive Date: 20051104
  Receipt Date: 20051026
  Transmission Date: 20060501
  Serious: Yes (Hospitalization, Other)
  Sender: FDA-Public Use
  Company Number: US-JNJFOC-20050900154

PATIENT
  Sex: Female
  Weight: 71.22 kg

DRUGS (9)
  1. REMICADE [Suspect]
     Indication: IRRITABLE BOWEL SYNDROME
     Route: 042
  2. REMICADE [Suspect]
     Indication: CROHN'S DISEASE
     Route: 042
  3. PREDNISONE [Suspect]
     Indication: CROHN'S DISEASE
  4. PENTASA [Concomitant]
     Indication: CROHN'S DISEASE
  5. 6-MP [Concomitant]
  6. XANAX [Concomitant]
  7. COMPAZINE [Concomitant]
     Indication: NAUSEA
  8. PERCOCET [Concomitant]
  9. PERCOCET [Concomitant]
     Dosage: AS NEEDED

REACTIONS (8)
  - DIARRHOEA [None]
  - DIZZINESS [None]
  - FEELING HOT AND COLD [None]
  - HOSPITALISATION [None]
  - NERVOUSNESS [None]
  - OPTIC NEURITIS [None]
  - PAIN [None]
  - PRURITUS GENERALISED [None]
